FAERS Safety Report 23979569 (Version 2)
Quarter: 2024Q3

REPORT INFORMATION
  Report Type: Spontaneous
  Country: US (occurrence: US)
  Receive Date: 20240616
  Receipt Date: 20240712
  Transmission Date: 20241017
  Serious: No
  Sender: SANOFI AVENTIS
  Company Number: US-SA-SAC20240610000075

PATIENT
  Sex: Male

DRUGS (2)
  1. DUPIXENT [Suspect]
     Active Substance: DUPILUMAB
     Indication: Dermatitis atopic
     Dosage: 300 MG, QOW
     Route: 058
  2. HERBALS\SUNFLOWER OIL [Suspect]
     Active Substance: HERBALS\SUNFLOWER OIL
     Dosage: UNK

REACTIONS (2)
  - Dry skin [Unknown]
  - Drug ineffective [Unknown]
